FAERS Safety Report 5939759-0 (Version None)
Quarter: 2008Q4

REPORT INFORMATION
  Report Type: 
  Country: None (occurrence: None)
  Receive Date: 20081031
  Receipt Date: 20081031
  Transmission Date: 20090506
  Serious: Yes (Other)
  Sender: FDA-Public Use
  Company Number: None

PATIENT
  Age: 28 Year
  Sex: Female
  Weight: 83.9154 kg

DRUGS (1)
  1. PREDNISONE [Suspect]
     Indication: OTITIS MEDIA
     Dosage: 20 MG 2 X DAILY
     Dates: start: 20081014, end: 20081023

REACTIONS (8)
  - AGGRESSION [None]
  - CRYING [None]
  - INSOMNIA [None]
  - MENTAL DISORDER [None]
  - MOOD SWINGS [None]
  - NIGHT SWEATS [None]
  - PAIN [None]
  - SCREAMING [None]
